FAERS Safety Report 7088923-9 (Version None)
Quarter: 2010Q4

REPORT INFORMATION
  Report Type: 
  Country: None (occurrence: None)
  Receive Date: 20101108
  Receipt Date: 20101101
  Transmission Date: 20110411
  Serious: Yes (Other)
  Sender: FDA-Public Use
  Company Number: PHHY2010CA56004

PATIENT
  Sex: Female

DRUGS (3)
  1. SANDOSTATIN LAR [Suspect]
     Indication: CARCINOID SYNDROME
     Dosage: 20 MG, QMO
     Route: 030
     Dates: start: 20090713
  2. SANDOSTATIN LAR [Suspect]
     Dosage: 10 MG, EVERY 10 DAYS
     Route: 030
     Dates: end: 20100922
  3. SANDOSTATIN LAR [Suspect]
     Dosage: 10 MG, UNK
     Route: 030

REACTIONS (13)
  - ABASIA [None]
  - ABDOMINAL DISCOMFORT [None]
  - ABDOMINAL PAIN [None]
  - BLOOD PRESSURE SYSTOLIC INCREASED [None]
  - CONTUSION [None]
  - DIARRHOEA [None]
  - DYSPNOEA [None]
  - FALL [None]
  - FRACTURE [None]
  - JOINT INJURY [None]
  - JOINT SWELLING [None]
  - OEDEMA PERIPHERAL [None]
  - POLLAKIURIA [None]
